FAERS Safety Report 9548072 (Version 1)
Quarter: 2013Q2

REPORT INFORMATION
  Report Type: Spontaneous
  Country: US (occurrence: None)
  Receive Date: 20130606
  Receipt Date: 20130606
  Transmission Date: 20140414
  Serious: Yes (Other)
  Sender: FDA-Public Use
  Company Number: 2013PROUSA02559

PATIENT
  Age: 79 Year
  Sex: Male
  Weight: 75 kg

DRUGS (5)
  1. PROVENGE (SIPULEUCEL-T) SUSPENSION, 250ML [Suspect]
     Indication: PROSTATE CANCER METASTATIC
     Route: 042
     Dates: start: 20130201, end: 20130201
  2. DRONABINOL [Concomitant]
  3. CITALOPRAM [Concomitant]
  4. CALCIUM + VITAMIN D (CALCIUM, COLECALCIFEROL) [Concomitant]
  5. ARIPIPRAZOLE (ARIPIPRAZOLE) [Concomitant]

REACTIONS (1)
  - Haematocrit decreased [None]
